FAERS Safety Report 5209661-0 (Version None)
Quarter: 2006Q4

REPORT INFORMATION
  Report Type: 
  Country: None (occurrence: None)
  Receive Date: 20061122
  Receipt Date: 20051024
  Transmission Date: 20070319
  Serious: Yes (Other)
  Sender: FDA-Public Use
  Company Number: 2005121381

PATIENT
  Age: 68 Year
  Sex: Female
  Weight: 66.2252 kg

DRUGS (7)
  1. LIPITOR [Suspect]
     Indication: HYPERLIPIDAEMIA
     Dosage: 80 MG (1 D)
     Dates: start: 20050101, end: 20050826
  2. CALCIUM (CALCIUM) [Concomitant]
  3. VITAMIN D [Concomitant]
  4. HYDROCHLOROTHIAZIDE [Concomitant]
  5. ASPIRIN [Concomitant]
  6. CENTRUM (MINERALS NOS, VITAMINS NOS) [Concomitant]
  7. FOSAMAX [Concomitant]

REACTIONS (3)
  - ADRENAL DISORDER [None]
  - HEPATIC CYST [None]
  - HEPATITIS ACUTE [None]
